FAERS Safety Report 12889423 (Version 1)
Quarter: 2016Q4

REPORT INFORMATION
  Report Type: Spontaneous
  Country: DE (occurrence: DE)
  Receive Date: 20161027
  Receipt Date: 20161027
  Transmission Date: 20170207
  Serious: Yes (Other)
  Sender: FDA-Public Use
  Company Number: DE-EMD SERONO-8114231

PATIENT
  Age: 50 Year
  Sex: Female

DRUGS (1)
  1. REBIF [Suspect]
     Active Substance: INTERFERON BETA-1A
     Indication: MULTIPLE SCLEROSIS
     Route: 058
     Dates: end: 201608

REACTIONS (2)
  - Multiple sclerosis relapse [Not Recovered/Not Resolved]
  - Brain stem syndrome [Not Recovered/Not Resolved]

NARRATIVE: CASE EVENT DATE: 201608
